FAERS Safety Report 6822627-X (Version None)
Quarter: 2010Q3

REPORT INFORMATION
  Report Type: 
  Country: None (occurrence: None)
  Receive Date: 20100708
  Receipt Date: 20100624
  Transmission Date: 20110219
  Serious: Yes (Hospitalization)
  Sender: FDA-Public Use
  Company Number: PL-MEDIMMUNE-MEDI-0011248

PATIENT
  Sex: Male
  Weight: 4.2 kg

DRUGS (2)
  1. SYNAGIS [Suspect]
     Indication: BRONCHOPULMONARY DYSPLASIA
     Route: 030
     Dates: start: 20100121, end: 20100121
  2. SYNAGIS [Suspect]
     Route: 030
     Dates: start: 20100301, end: 20100401

REACTIONS (4)
  - GASTROENTERITIS ROTAVIRUS [None]
  - GASTROINTESTINAL INFECTION [None]
  - PYELONEPHRITIS [None]
  - URINARY TRACT INFECTION [None]
